FAERS Safety Report 7347313-1 (Version None)
Quarter: 2011Q1

REPORT INFORMATION
  Report Type: 
  Country: None (occurrence: None)
  Receive Date: 20110303
  Receipt Date: 20110216
  Transmission Date: 20110831
  Serious: Yes (Hospitalization, Other)
  Sender: FDA-Public Use
  Company Number: 018078

PATIENT
  Sex: Male
  Weight: 20.3 kg

DRUGS (7)
  1. DIASTAT [Concomitant]
  2. LACOSAMIDE [Suspect]
     Indication: PARTIAL SEIZURES
     Dosage: (8MG/KG/DAY ORAL) (4MG/KG/DAY ORAL) (5MG/KGDAY ORAL) (6MG/KG/DAY ORAL)
     Route: 048
     Dates: start: 20100902, end: 20101025
  3. LACOSAMIDE [Suspect]
     Indication: PARTIAL SEIZURES
     Dosage: (8MG/KG/DAY ORAL) (4MG/KG/DAY ORAL) (5MG/KGDAY ORAL) (6MG/KG/DAY ORAL)
     Route: 048
     Dates: start: 20101026, end: 20110105
  4. LACOSAMIDE [Suspect]
     Indication: PARTIAL SEIZURES
     Dosage: (8MG/KG/DAY ORAL) (4MG/KG/DAY ORAL) (5MG/KGDAY ORAL) (6MG/KG/DAY ORAL)
     Route: 048
     Dates: start: 20110106
  5. LACOSAMIDE [Suspect]
     Indication: PARTIAL SEIZURES
     Dosage: (8MG/KG/DAY ORAL) (4MG/KG/DAY ORAL) (5MG/KGDAY ORAL) (6MG/KG/DAY ORAL)
     Route: 048
     Dates: start: 20100623, end: 20100901
  6. LAMICTAL [Concomitant]
  7. TRILEPTAL [Concomitant]

REACTIONS (18)
  - DISTURBANCE IN ATTENTION [None]
  - HEMIPARESIS [None]
  - CLONUS [None]
  - ACTIVITIES OF DAILY LIVING IMPAIRED [None]
  - ATAXIA [None]
  - DROOLING [None]
  - CONVULSION [None]
  - FALL [None]
  - PSYCHOMOTOR SKILLS IMPAIRED [None]
  - HYPERREFLEXIA [None]
  - CONDITION AGGRAVATED [None]
  - TOXICITY TO VARIOUS AGENTS [None]
  - NERVOUS SYSTEM DISORDER [None]
  - FACE INJURY [None]
  - GAIT DISTURBANCE [None]
  - METABOLIC DISORDER [None]
  - SWELLING FACE [None]
  - ELECTROENCEPHALOGRAM ABNORMAL [None]
